FAERS Safety Report 8313221-2 (Version None)
Quarter: 2012Q2

REPORT INFORMATION
  Report Type: 
  Country: None (occurrence: None)
  Receive Date: 20120426
  Receipt Date: 20120420
  Transmission Date: 20120825
  Serious: Yes (Other)
  Sender: FDA-Public Use
  Company Number: US-BAYER-2012-039458

PATIENT
  Sex: Female

DRUGS (7)
  1. HYDROCHLOROTHIAZIDE [Concomitant]
  2. MULTI-VITAMIN [Concomitant]
  3. AMPYRA [Concomitant]
     Dosage: UNK
  4. VITAMIN B COMPLEX [CYANOCOBALAMIN] [Concomitant]
  5. BETASERON [Suspect]
     Indication: MULTIPLE SCLEROSIS
     Dosage: 0.3 MG, QOD
     Route: 058
  6. CALCIUM [Concomitant]
  7. GLUCOSAMINE W/CHONDROITIN SULFATE [Concomitant]

REACTIONS (1)
  - MULTIPLE SCLEROSIS [None]
